FAERS Safety Report 7052515-8 (Version None)
Quarter: 2010Q4

REPORT INFORMATION
  Report Type: 
  Country: None (occurrence: None)
  Receive Date: 20101019
  Receipt Date: 20101012
  Transmission Date: 20110411
  Serious: Yes (Hospitalization)
  Sender: FDA-Public Use
  Company Number: CH-PFIZER INC-2010129256

PATIENT
  Age: 68 Year
  Sex: Female

DRUGS (19)
  1. PONSTAN [Interacting]
     Indication: RHEUMATOID ARTHRITIS
     Dosage: 500 MG, UNK
     Route: 048
     Dates: end: 20100911
  2. DIFLUCAN [Suspect]
     Indication: CANDIDIASIS
     Dosage: UNK
     Dates: start: 20100901, end: 20100901
  3. METOJECT [Interacting]
     Indication: RHEUMATOID ARTHRITIS
     Dosage: UNK
     Route: 030
     Dates: start: 20091201, end: 20100101
  4. PREDNISOLON [Suspect]
     Indication: RHEUMATOID ARTHRITIS
     Dosage: 10 MG, 1X/DAY
     Route: 048
     Dates: start: 20100401
  5. HUMIRA [Suspect]
     Indication: RHEUMATOID ARTHRITIS
     Dosage: 1 EVERY 2 WEEKS
     Route: 040
     Dates: start: 20100401, end: 20100811
  6. TOREM [Suspect]
     Indication: ESSENTIAL HYPERTENSION
     Dosage: 20 MG, 3X/DAY
     Route: 048
  7. IRFEN [Interacting]
     Indication: RHEUMATOID ARTHRITIS
     Dosage: 800 MG, 1X/DAY
     Route: 048
     Dates: end: 20100911
  8. AUGMENTIN '125' [Suspect]
     Indication: UPPER RESPIRATORY TRACT INFECTION
     Dosage: UNK
     Route: 048
     Dates: start: 20100801, end: 20100101
  9. ASPIRIN [Concomitant]
     Dosage: 100 MG, 1X/DAY
     Route: 048
     Dates: end: 20100911
  10. METOPROLOL TARTRATE [Concomitant]
     Dosage: 25 MG, 2X/DAY
     Route: 048
  11. BEROCCA C [Concomitant]
     Dosage: 1 DF, 1X/DAY
     Route: 048
     Dates: end: 20100911
  12. COZAAR [Concomitant]
     Dosage: 100 MG, 1X/DAY
     Route: 048
  13. EUTHYROX [Concomitant]
     Dosage: 75 UG, 1X/DAY
     Route: 048
  14. JANUMET [Concomitant]
     Dosage: 50 MG, 2X/DAY
     Route: 048
     Dates: end: 20100911
  15. POTASSIUM CHLORIDE [Concomitant]
     Dosage: 2 DF, 3X/DAY
     Route: 048
  16. PANTOPRAZOLE SODIUM [Concomitant]
     Dosage: 40 MG, 1X/DAY
     Route: 048
  17. SORTIS [Concomitant]
     Dosage: 20 MG, 1X/DAY
     Route: 048
  18. FOLIC ACID [Concomitant]
     Dosage: 5 MG, WEEKLY
     Route: 048
     Dates: end: 20100901
  19. MAGNESIOCARD [Concomitant]
     Dosage: 7.5 MG, 2X/DAY

REACTIONS (11)
  - ARRHYTHMIA [None]
  - CANDIDIASIS [None]
  - CHEILITIS [None]
  - EPISTAXIS [None]
  - FUNGAL INFECTION [None]
  - HYPOTENSION [None]
  - LABELLED DRUG-DRUG INTERACTION MEDICATION ERROR [None]
  - PANCYTOPENIA [None]
  - RASH MACULO-PAPULAR [None]
  - RENAL FAILURE CHRONIC [None]
  - STOMATITIS [None]
